FAERS Safety Report 7040180-5 (Version None)
Quarter: 2010Q4

REPORT INFORMATION
  Report Type: 
  Country: None (occurrence: None)
  Receive Date: 20101012
  Receipt Date: 20100930
  Transmission Date: 20110411
  Serious: Yes (Hospitalization)
  Sender: FDA-Public Use
  Company Number: DE-WYE-H17259910

PATIENT
  Age: 70 Year
  Sex: Male

DRUGS (11)
  1. SUPRAX [Interacting]
     Indication: PNEUMONIA ASPIRATION
     Route: 048
     Dates: start: 20100627, end: 20100711
  2. PANTOPRAZOLE SODIUM [Interacting]
     Indication: NAUSEA
     Route: 048
     Dates: start: 20090101
  3. VIGANTOLETTEN [Concomitant]
     Indication: OSTEOPOROSIS
     Dosage: UNKNOWN TWICE DAILY
     Route: 048
     Dates: start: 20090101
  4. AMITRIPTYLINE HCL [Concomitant]
     Indication: DEPRESSION
     Route: 048
     Dates: start: 20060101
  5. CIPRAMIL [Concomitant]
     Indication: DEPRESSION
     Route: 048
     Dates: start: 20090101
  6. SEROQUEL [Concomitant]
     Indication: PSYCHOTIC DISORDER
     Route: 048
     Dates: start: 20080101
  7. ASS ^CT-ARZNEIMITTEL^ [Concomitant]
     Indication: PROPHYLAXIS
     Route: 048
     Dates: start: 20060101
  8. MADOPAR [Concomitant]
     Indication: PARKINSON'S DISEASE
     Route: 048
     Dates: start: 20060101
  9. CARBIDOPA + LEVODOPA [Concomitant]
     Indication: PARKINSON'S DISEASE
     Dosage: 100MG/25MG ONCE DAILY
     Route: 048
     Dates: start: 20060101
  10. ROCEPHIN [Suspect]
     Indication: PNEUMONIA ASPIRATION
     Route: 042
     Dates: start: 20100616, end: 20100625
  11. PK-MERZ [Concomitant]
     Indication: PARKINSON'S DISEASE
     Route: 048
     Dates: start: 20070101

REACTIONS (3)
  - CLOSTRIDIUM DIFFICILE COLITIS [None]
  - DEHYDRATION [None]
  - DRUG INTERACTION [None]
